FAERS Safety Report 12136723 (Version 4)
Quarter: 2016Q2

REPORT INFORMATION
  Report Type: Spontaneous
  Country: DE (occurrence: DE)
  Receive Date: 20160302
  Receipt Date: 20160414
  Transmission Date: 20160815
  Serious: Yes (Hospitalization, Other)
  Sender: FDA-Public Use
  Company Number: DE-BEH-2016059446

PATIENT
  Sex: Female
  Weight: 64 kg

DRUGS (15)
  1. FEMIBION [Concomitant]
     Active Substance: VITAMINS
     Indication: PREGNANCY
     Dosage: EXPOSURE DURING PREGNANCY
     Route: 048
  2. FIBROGAMMIN [Suspect]
     Active Substance: FACTOR XIII CONCENTRATE (HUMAN)
     Dosage: BATCH NO. NOT AVAILABLE UNTIL END OF 2015, EXPOSURE PRIOR AND DURING PREGNANCY
  3. FIBROGAMMIN [Suspect]
     Active Substance: FACTOR XIII CONCENTRATE (HUMAN)
     Dosage: DOSE: 1X FIBROGAMMIN 1250
     Dates: start: 20160217
  4. L-THYROXIN [Concomitant]
     Active Substance: LEVOTHYROXINE SODIUM
     Indication: HYPOTHYROIDISM
     Dosage: EXPOSURE PRIOR TO PREGNANCY
     Route: 048
  5. FIBROGAMMIN [Suspect]
     Active Substance: FACTOR XIII CONCENTRATE (HUMAN)
     Indication: AMENORRHOEA
     Dosage: DOSE: 1X FIBROGAMMIN 1250
     Dates: start: 20160222
  6. HAEMATE P [Suspect]
     Active Substance: ANTIHEMOPHILIC FACTOR HUMAN
     Indication: VON WILLEBRAND^S DISEASE
     Dosage: BATCH NO. NOT AVAILABLE UNTIL END OF 2015, EXPOSURE PRIOR AND DURING PREGNANCY
  7. HAEMATE P [Suspect]
     Active Substance: ANTIHEMOPHILIC FACTOR HUMAN
     Indication: AMENORRHOEA
     Dosage: BATCH NO. NOT AVAILABLE UNTIL END OF 2015, EXPOSURE PRIOR AND DURING PREGNANCY
  8. FIBROGAMMIN [Suspect]
     Active Substance: FACTOR XIII CONCENTRATE (HUMAN)
     Dosage: DOSE: 1X FIBROGAMMIN 1250
     Dates: start: 20160201
  9. HAEMATE P [Suspect]
     Active Substance: ANTIHEMOPHILIC FACTOR HUMAN
     Indication: HAEMORRHAGE PROPHYLAXIS
     Dosage: BATCH NO. NOT AVAILABLE UNTIL END OF 2015, EXPOSURE PRIOR AND DURING PREGNANCY
  10. FIBROGAMMIN [Suspect]
     Active Substance: FACTOR XIII CONCENTRATE (HUMAN)
     Indication: HAEMORRHAGE PROPHYLAXIS
     Dosage: DOSE: 1X FIBROGAMMIN 1250
     Dates: start: 20160118
  11. FERROSANOL [Concomitant]
     Active Substance: FERROUS GLUCONATE
     Indication: IRON DEFICIENCY
     Dosage: EXPOSURE PRIOR AND DURING PREGNANCY
     Route: 048
  12. METFORMIN [Concomitant]
     Active Substance: METFORMIN HYDROCHLORIDE
     Indication: PLANNING TO BECOME PREGNANT
     Dosage: EXPOSURE PRIOR TO PREGNANCY
  13. FIBROGAMMIN [Suspect]
     Active Substance: FACTOR XIII CONCENTRATE (HUMAN)
     Indication: FACTOR XIII DEFICIENCY
     Dosage: DOSE: 1X FIBROGAMMIN 1250
     Dates: start: 20160125
  14. FIBROGAMMIN [Suspect]
     Active Substance: FACTOR XIII CONCENTRATE (HUMAN)
     Dosage: DOSE: 1X FIBROGAMMIN 1250
     Dates: start: 20160212
  15. PROLUTON [Concomitant]
     Active Substance: HYDROXYPROGESTERONE CAPROATE
     Indication: PROGESTERONE DECREASED
     Dosage: EXPOSURE DURING PREGNANCY
     Route: 058

REACTIONS (4)
  - Foetal heart rate abnormal [Unknown]
  - Abortion induced [Unknown]
  - Exposure during pregnancy [Unknown]
  - Maternal exposure before pregnancy [Unknown]
